FAERS Safety Report 4633335-8 (Version None)
Quarter: 2005Q2

REPORT INFORMATION
  Report Type: 
  Country: None (occurrence: None)
  Receive Date: 20050408
  Receipt Date: 20050331
  Transmission Date: 20051028
  Serious: Yes (Hospitalization)
  Sender: FDA-Public Use
  Company Number: AWBNIASPAND2004-65

PATIENT
  Age: 43 Year
  Sex: Female

DRUGS (3)
  1. NIASPAN [Suspect]
     Indication: DYSLIPIDAEMIA
     Dosage: 750 MG QHS PO
     Route: 048
     Dates: start: 20040920, end: 20041001
  2. METOPROLOL SUCCINATE [Concomitant]
  3. METFORMIN HCL [Concomitant]

REACTIONS (2)
  - ANGIONEUROTIC OEDEMA [None]
  - PYREXIA [None]
